FAERS Safety Report 19606052 (Version 1)
Quarter: 2021Q3

REPORT INFORMATION
  Report Type: Report from Study
  Country: US (occurrence: US)
  Receive Date: 20210723
  Receipt Date: 20210723
  Transmission Date: 20211014
  Serious: Yes (Hospitalization)
  Sender: FDA-Public Use
  Company Number: US-BAXTER-2021BAX021910

PATIENT
  Sex: Female
  Weight: 120.6 kg

DRUGS (14)
  1. CYCLOPHOSPHAMIDE FOR INJECTION, USP [Suspect]
     Active Substance: CYCLOPHOSPHAMIDE
     Indication: PRODUCT USED FOR UNKNOWN INDICATION
     Dosage: 6 COURSES
     Route: 065
  2. VINCRISTINE SULFATE. [Suspect]
     Active Substance: VINCRISTINE SULFATE
     Dosage: 7TH COURSE
     Route: 065
     Dates: start: 20200109, end: 20200312
  3. RITUXIMAB. [Suspect]
     Active Substance: RITUXIMAB
     Dosage: 7TH COURSE, TOTAL DOSE ADMINISTERED IN THIS COURSE 17755 MG
     Route: 065
     Dates: start: 20200109, end: 20200116
  4. METHOTREXATE SODIUM. [Suspect]
     Active Substance: METHOTREXATE SODIUM
     Indication: PRODUCT USED FOR UNKNOWN INDICATION
     Dosage: 6 COURSES
     Route: 037
  5. RITUXIMAB. [Suspect]
     Active Substance: RITUXIMAB
     Indication: PRODUCT USED FOR UNKNOWN INDICATION
     Dosage: 6 COURSES
     Route: 065
  6. METHOTREXATE SODIUM. [Suspect]
     Active Substance: METHOTREXATE SODIUM
     Dosage: 7TH COURSE, TOTAL DOSE ADMINISTERED IN THIS COURSE 60 MG
     Route: 037
     Dates: start: 20200109, end: 20200706
  7. DOXIL [Suspect]
     Active Substance: DOXORUBICIN HYDROCHLORIDE
     Dosage: 7TH COURSE, TOTAL DOSE ADMINISTERED IN THIS COURSE 175.5 MG
     Route: 065
     Dates: start: 20200109, end: 20200123
  8. CYTARABINE. [Suspect]
     Active Substance: CYTARABINE
     Dosage: 7TH COURSE, TOTAL DOSE ADMINISTERED IN THIS COURSE 1404 MG
     Route: 065
     Dates: start: 20200210, end: 20200220
  9. VINCRISTINE SULFATE. [Suspect]
     Active Substance: VINCRISTINE SULFATE
     Indication: PRODUCT USED FOR UNKNOWN INDICATION
     Dosage: 6 COURSES
     Route: 065
  10. DOXIL [Suspect]
     Active Substance: DOXORUBICIN HYDROCHLORIDE
     Indication: PRODUCT USED FOR UNKNOWN INDICATION
     Dosage: 6 COURSES
     Route: 065
  11. CYCLOPHOSPHAMIDE FOR INJECTION, USP [Suspect]
     Active Substance: CYCLOPHOSPHAMIDE
     Dosage: 7TH COURSE, TOTAL DOSE ADMINISTERED IN THIS COURSE 2300 MG
     Route: 065
     Dates: start: 20200210, end: 20200210
  12. CYTARABINE. [Suspect]
     Active Substance: CYTARABINE
     Indication: PRODUCT USED FOR UNKNOWN INDICATION
     Dosage: 6 COURSES
     Route: 065
  13. ONCASPAR [Suspect]
     Active Substance: PEGASPARGASE
     Indication: PRODUCT USED FOR UNKNOWN INDICATION
     Dosage: 6 COURSES
     Route: 065
  14. ONCASPAR [Suspect]
     Active Substance: PEGASPARGASE
     Dosage: 7TH COURSE, TOTAL DOSE ADMINISTERED IN THIS COURSE 3750 IU
     Route: 065
     Dates: start: 20200114, end: 20200305

REACTIONS (1)
  - Small intestinal obstruction [Recovered/Resolved with Sequelae]

NARRATIVE: CASE EVENT DATE: 20200621
